FAERS Safety Report 5743884-7 (Version None)
Quarter: 2008Q2

REPORT INFORMATION
  Report Type: 
  Country: None (occurrence: None)
  Receive Date: 20080520
  Receipt Date: 20080512
  Transmission Date: 20081010
  Serious: Yes (Other)
  Sender: FDA-Public Use
  Company Number: US-ELI_LILLY_AND_COMPANY-US200805002191

PATIENT
  Sex: Female

DRUGS (1)
  1. XIGRIS [Suspect]
     Route: 042

REACTIONS (1)
  - TERMINAL STATE [None]
